FAERS Safety Report 9626205 (Version 2)
Quarter: 2013Q4

REPORT INFORMATION
  Report Type: Spontaneous
  Country: US (occurrence: None)
  Receive Date: 20131007
  Receipt Date: 20131010
  Transmission Date: 20140711
  Serious: Yes (Hospitalization)
  Sender: FDA-Public Use
  Company Number: 2013038289

PATIENT
  Age: 9 Year
  Sex: Female
  Weight: 26.6 kg

DRUGS (6)
  1. CARIMUNE [Suspect]
     Indication: HYPOGAMMAGLOBULINAEMIA
     Route: 042
     Dates: start: 20130926, end: 20130926
  2. ACETAMINOPHEN [Concomitant]
  3. DIPHENHYDRAMINE (DIPHENHYDRAMINE) [Concomitant]
  4. BECLOMETHASONE (BECLOMETASONE DIPROPIONATE) [Concomitant]
  5. DIAZEPAM (DIAZEPAM) [Concomitant]
  6. LEVOCARNITINE (LEVOCARNITINE) [Concomitant]

REACTIONS (3)
  - Meningitis aseptic [None]
  - Nausea [None]
  - Vomiting [None]
